FAERS Safety Report 7571716-3 (Version None)
Quarter: 2011Q2

REPORT INFORMATION
  Report Type: 
  Country: None (occurrence: None)
  Receive Date: 20110615
  Receipt Date: 20110518
  Transmission Date: 20111010
  Serious: Yes (Other)
  Sender: FDA-Public Use
  Company Number: 2011028858

PATIENT
  Age: 74 Year
  Sex: Male
  Weight: 95.2554 kg

DRUGS (27)
  1. ALBUTEROL [Concomitant]
  2. HYDROCODONE (HYDROCODONE) [Concomitant]
  3. CLARITIN [Concomitant]
  4. SYNTHROID [Concomitant]
  5. FINASTERIDE [Concomitant]
  6. SIMVASTATIN [Concomitant]
  7. CASODEX [Concomitant]
  8. NAPROXEN [Concomitant]
  9. FUROSEMIDE [Concomitant]
  10. PRIMIDONE [Concomitant]
  11. HIZENTRA [Suspect]
     Indication: IMMUNODEFICIENCY COMMON VARIABLE
     Dosage: (16 G 1X/WEEK, INFUSED 80 ML VIA 6 SITES OVER 1 HOUR 27 MINUTES SUBCUTANEOUS)
     Route: 058
     Dates: start: 20101201
  12. HIZENTRA [Suspect]
     Indication: IMMUNODEFICIENCY COMMON VARIABLE
     Dosage: (16 G 1X/WEEK, INFUSED 80 ML VIA 6 SITES OVER 1 HOUR 27 MINUTES SUBCUTANEOUS)
     Route: 058
     Dates: start: 20110501
  13. LEXAPRO [Concomitant]
  14. DIOVAN [Concomitant]
  15. BUPROPION (BUPROPION) [Concomitant]
  16. OMNARIS (CICLESONIDE) [Concomitant]
  17. MUCINEX [Concomitant]
  18. SINGULAIR [Concomitant]
  19. FEXOFENADINE HCL [Concomitant]
  20. OMEGA-3 (OMEGA-3 FATTY ACIDS) [Concomitant]
  21. GABAPENTIN [Concomitant]
  22. ZANTAC [Concomitant]
  23. CO-Q10 (UBIDECARENONE) [Concomitant]
  24. LANTUS [Concomitant]
  25. AMBIEN [Concomitant]
  26. SYMBICORT [Concomitant]
  27. PLAVIX [Concomitant]

REACTIONS (1)
  - RESPIRATORY TRACT INFECTION [None]
